FAERS Safety Report 4537658-2 (Version None)
Quarter: 2004Q4

REPORT INFORMATION
  Report Type: 
  Country: None (occurrence: None)
  Receive Date: 20041221
  Receipt Date: 20041018
  Transmission Date: 20050328
  Serious: Yes (Death, Other)
  Sender: FDA-Public Use
  Company Number: PERC20040055

PATIENT
  Age: 19 Year
  Sex: Male

DRUGS (4)
  1. PERCOCET [Suspect]
     Dates: start: 20040703, end: 20040703
  2. DURAGESIC [Suspect]
     Dosage: TOP/PO
     Route: 048
     Dates: end: 20040703
  3. XANAX [Suspect]
     Dates: start: 20040703, end: 20040703
  4. ECSTACY [Suspect]
     Dates: start: 20040703, end: 20040703

REACTIONS (2)
  - DRUG ABUSER [None]
  - MULTIPLE DRUG OVERDOSE [None]
